FAERS Safety Report 10461243 (Version 1)
Quarter: 2014Q3

REPORT INFORMATION
  Report Type: Spontaneous
  Country: CH (occurrence: None)
  Receive Date: 20140916
  Receipt Date: 20140916
  Transmission Date: 20150326
  Serious: Yes (Hospitalization)
  Sender: FDA-Public Use
  Company Number: 20140594

PATIENT
  Age: 21 Year
  Sex: Female
  Weight: 55 kg

DRUGS (2)
  1. M-M-RVAXPRO (MEASLES, MUMPS AND RUBELLA VACCINE) [Suspect]
     Active Substance: MEASLES-MUMPS-RUBELLA VIRUS VACCINE, LIVE
     Indication: IMMUNISATION
     Route: 058
     Dates: start: 20140816, end: 20140816
  2. FERINJECT [Suspect]
     Active Substance: FERRIC CARBOXYMALTOSE
     Indication: IRON DEFICIENCY
     Route: 041
     Dates: start: 20140816

REACTIONS (4)
  - Pruritus [None]
  - Urticaria [None]
  - Angina pectoris [None]
  - Tremor [None]

NARRATIVE: CASE EVENT DATE: 20140816
